FAERS Safety Report 12981906 (Version 3)
Quarter: 2017Q1

REPORT INFORMATION
  Report Type: Report from Study
  Country: US (occurrence: US)
  Receive Date: 20161129
  Receipt Date: 20170118
  Transmission Date: 20170428
  Serious: Yes (Other)
  Sender: FDA-Public Use
  Company Number: US-CORCEPT THERAPEUTICS INC.-US-2016CRT000744

PATIENT

DRUGS (7)
  1. JANUVIA [Concomitant]
     Active Substance: SITAGLIPTIN PHOSPHATE
     Indication: PRODUCT USED FOR UNKNOWN INDICATION
     Dosage: UNK
  2. KORLYM [Suspect]
     Active Substance: MIFEPRISTONE
     Indication: ABNORMAL WEIGHT GAIN
     Dosage: 900 MG, QD
     Route: 048
     Dates: start: 20161018, end: 20161108
  3. KORLYM [Suspect]
     Active Substance: MIFEPRISTONE
     Dosage: 1200 MG, QD
     Route: 048
     Dates: start: 20161109
  4. SPIRONOLACTONE. [Concomitant]
     Active Substance: SPIRONOLACTONE
     Dosage: UNK 3 DAILY
     Dates: start: 20161109
  5. SPIRONOLACTONE. [Concomitant]
     Active Substance: SPIRONOLACTONE
     Indication: PRODUCT USED FOR UNKNOWN INDICATION
     Dosage: UNK
     Dates: end: 20161108
  6. KORLYM [Suspect]
     Active Substance: MIFEPRISTONE
     Indication: CUSHING^S SYNDROME
     Dosage: 300 MG, QD
     Route: 048
     Dates: start: 20160729, end: 20160811
  7. KORLYM [Suspect]
     Active Substance: MIFEPRISTONE
     Indication: AUTOIMMUNE THYROIDITIS
     Dosage: 600 MG, QD
     Route: 048
     Dates: start: 20160812, end: 20161017

REACTIONS (15)
  - Dysarthria [Unknown]
  - Vertigo [Not Recovered/Not Resolved]
  - Labyrinthitis [Not Recovered/Not Resolved]
  - Toxicity to various agents [Unknown]
  - Altered visual depth perception [Not Recovered/Not Resolved]
  - Skin discolouration [Recovered/Resolved]
  - Middle ear effusion [Not Recovered/Not Resolved]
  - Abasia [Unknown]
  - Muscular weakness [Not Recovered/Not Resolved]
  - Blood pressure decreased [Not Recovered/Not Resolved]
  - Off label use [Recovered/Resolved]
  - Feeling abnormal [Not Recovered/Not Resolved]
  - Malabsorption [Unknown]
  - Dizziness [Not Recovered/Not Resolved]
  - Coordination abnormal [Not Recovered/Not Resolved]

NARRATIVE: CASE EVENT DATE: 2016
